FAERS Safety Report 15113809 (Version 2)
Quarter: 2018Q3

REPORT INFORMATION
  Report Type: Spontaneous
  Country: JP (occurrence: JP)
  Receive Date: 20180706
  Receipt Date: 20180812
  Transmission Date: 20181010
  Serious: Yes (Hospitalization, Other)
  Sender: FDA-Public Use
  Company Number: JP-ROCHE-2148089

PATIENT
  Age: 12 Year
  Sex: Male

DRUGS (2)
  1. TISAGENLECLEUCEL. [Suspect]
     Active Substance: TISAGENLECLEUCEL
     Indication: ACUTE LYMPHOCYTIC LEUKAEMIA
     Route: 041
  2. ACTEMRA [Suspect]
     Active Substance: TOCILIZUMAB
     Indication: CYTOKINE RELEASE SYNDROME
     Route: 065
     Dates: start: 20160728

REACTIONS (20)
  - Upper respiratory tract infection [Unknown]
  - Acute kidney injury [Recovered/Resolved]
  - Blood creatine phosphokinase increased [Recovering/Resolving]
  - Hypoxia [Recovered/Resolved]
  - Hepatic function abnormal [Not Recovered/Not Resolved]
  - Serum ferritin increased [Recovered/Resolved]
  - Off label use [Unknown]
  - Blood urea increased [Unknown]
  - Pleural effusion [Recovered/Resolved]
  - Nasopharyngitis [Unknown]
  - Cytokine release syndrome [Unknown]
  - Tumour lysis syndrome [Recovered/Resolved]
  - Blood fibrinogen decreased [Recovered/Resolved]
  - Neutrophil count decreased [Recovering/Resolving]
  - Otitis externa [Recovered/Resolved]
  - Constipation [Recovered/Resolved]
  - Blood creatinine increased [Unknown]
  - Disseminated intravascular coagulation [Unknown]
  - Otitis media [Recovered/Resolved]
  - White blood cell count decreased [Recovered/Resolved]

NARRATIVE: CASE EVENT DATE: 20160728
